FAERS Safety Report 20004442 (Version 2)
Quarter: 2022Q2

REPORT INFORMATION
  Report Type: Report from Study
  Country: GB (occurrence: GB)
  Receive Date: 20211028
  Receipt Date: 20220422
  Transmission Date: 20220721
  Serious: Yes (Hospitalization)
  Sender: FDA-Public Use
  Company Number: GB-BRISTOL-MYERS SQUIBB COMPANY-BMS-2021-110794

PATIENT
  Age: 37 Year
  Sex: Female
  Weight: 60.5 kg

DRUGS (11)
  1. NIVOLUMAB [Suspect]
     Active Substance: NIVOLUMAB
     Indication: Ovarian cancer
     Dosage: 240 MILLIGRAM, CYCLE 3
     Route: 042
     Dates: start: 20210618, end: 20211015
  2. NIVOLUMAB [Suspect]
     Active Substance: NIVOLUMAB
     Indication: Peritoneal cancer index
  3. NIVOLUMAB [Suspect]
     Active Substance: NIVOLUMAB
     Indication: Fallopian tube cancer
  4. IPILIMUMAB [Suspect]
     Active Substance: IPILIMUMAB
     Indication: Fallopian tube cancer
     Dosage: 65 MILLIGRAM, CYCLE 3
     Route: 042
     Dates: start: 20210618, end: 20211017
  5. IPILIMUMAB [Suspect]
     Active Substance: IPILIMUMAB
     Indication: Ovarian cancer
  6. IPILIMUMAB [Suspect]
     Active Substance: IPILIMUMAB
     Indication: Peritoneal cancer index
  7. RUCAPARIB [Suspect]
     Active Substance: RUCAPARIB
     Indication: Ovarian cancer
     Dosage: 400 MILLIGRAM, CYCLE 3
     Route: 048
     Dates: start: 20210618, end: 20211021
  8. RUCAPARIB [Suspect]
     Active Substance: RUCAPARIB
     Indication: Peritoneal cancer index
  9. RUCAPARIB [Suspect]
     Active Substance: RUCAPARIB
     Indication: Fallopian tube cancer
  10. NIVOLUMAB [Suspect]
     Active Substance: NIVOLUMAB
     Indication: Peritoneal cancer index
  11. NIVOLUMAB [Suspect]
     Active Substance: NIVOLUMAB
     Indication: Fallopian tube cancer

REACTIONS (3)
  - Abdominal pain [Recovered/Resolved]
  - Abdominal hernia [Unknown]
  - Condition aggravated [Unknown]

NARRATIVE: CASE EVENT DATE: 20211019
